FAERS Safety Report 7915386-0 (Version None)
Quarter: 2011Q4

REPORT INFORMATION
  Report Type: 
  Country: None (occurrence: None)
  Receive Date: 20111115
  Receipt Date: 20111109
  Transmission Date: 20120403
  Serious: Yes (Death)
  Sender: FDA-Public Use
  Company Number: PHHY2011NL098840

PATIENT
  Sex: Male

DRUGS (2)
  1. ZOMETA [Suspect]
     Indication: PROSTATE CANCER METASTATIC
     Dosage: 4 MG/5 ML ONCE PER 4 WEEKS
     Route: 042
     Dates: start: 20110825
  2. ZOMETA [Suspect]
     Dosage: 4 MG/5 ML ONCE PER 4 WEEKS
     Route: 042
     Dates: start: 20111006

REACTIONS (3)
  - DEATH [None]
  - SOMNOLENCE [None]
  - DYSPNOEA [None]
